FAERS Safety Report 17511475 (Version 1)
Quarter: 2020Q1

REPORT INFORMATION
  Report Type: Spontaneous
  Country: US (occurrence: US)
  Receive Date: 20200306
  Receipt Date: 20200306
  Transmission Date: 20200409
  Serious: No
  Sender: FDA-Public Use
  Company Number: US-FRESENIUS KABI-FK202002293

PATIENT

DRUGS (1)
  1. DIPRIVAN [Suspect]
     Active Substance: PROPOFOL
     Indication: SEDATIVE THERAPY
     Dosage: EXACT DOSE UNKNOWN; BUT PATIENT WAS ADMINISTERED UP TO 50 MCG/KG/MIN
     Route: 042
     Dates: start: 202003, end: 202003

REACTIONS (1)
  - Therapeutic product effect decreased [Recovered/Resolved]

NARRATIVE: CASE EVENT DATE: 202003
